FAERS Safety Report 21884564 (Version 1)
Quarter: 2023Q1

REPORT INFORMATION
  Report Type: Spontaneous
  Country: US (occurrence: None)
  Receive Date: 20230118
  Receipt Date: 20230118
  Transmission Date: 20230417
  Serious: Yes (Hospitalization)
  Sender: FDA-Public Use
  Company Number: None

PATIENT
  Age: 65 Year
  Sex: Female

DRUGS (1)
  1. DIMETHYL FUMARATE [Suspect]
     Active Substance: DIMETHYL FUMARATE
     Dosage: FREQUENCY : TWICE A DAY;?
     Route: 048

REACTIONS (7)
  - Dyspepsia [None]
  - Flushing [None]
  - Vomiting [None]
  - Urinary tract infection [None]
  - Cellulitis [None]
  - Atrial fibrillation [None]
  - Dysstasia [None]

NARRATIVE: CASE EVENT DATE: 20220717
